FAERS Safety Report 8857413 (Version 1)
Quarter: 2012Q4

REPORT INFORMATION
  Report Type: 
  Country: JP (occurrence: JP)
  Receive Date: 20121024
  Receipt Date: 20121024
  Transmission Date: 20130627
  Serious: Yes (Hospitalization)
  Sender: FDA-Public Use
  Company Number: JP-009507513-1210JPN001959

PATIENT
  Age: 72 Year
  Sex: Male

DRUGS (4)
  1. ZETIA [Suspect]
     Indication: HYPERLIPIDAEMIA
     Dosage: 10 mg, qd
     Route: 048
     Dates: start: 201206, end: 201209
  2. EQUA [Suspect]
     Route: 048
  3. MICARDIS [Concomitant]
     Route: 048
  4. [COMPOSITION UNSPECIFIED] [Concomitant]

REACTIONS (1)
  - Interstitial lung disease [Recovering/Resolving]
